FAERS Safety Report 5340778-6 (Version None)
Quarter: 2007Q2

REPORT INFORMATION
  Report Type: 
  Country: None (occurrence: None)
  Receive Date: 20070531
  Receipt Date: 20070518
  Transmission Date: 20071010
  Serious: Yes (Other)
  Sender: FDA-Public Use
  Company Number: US-SHR-US-2007-015725

PATIENT
  Age: 35 Year
  Sex: Male
  Weight: 103 kg

DRUGS (6)
  1. BETASERON [Suspect]
     Indication: RELAPSING-REMITTING MULTIPLE SCLEROSIS
     Route: 058
     Dates: start: 19980731, end: 20070401
  2. BETASERON [Suspect]
     Dosage: 8 MIU, EVERY 2D
     Route: 058
     Dates: start: 20070422
  3. ALTACE [Concomitant]
     Dosage: 2.5 MG/D, UNK
  4. AMITRIPTYLINE HCL [Concomitant]
     Dosage: 25 MG, BED T.
  5. AZATHIOPRINE [Concomitant]
     Dosage: 50 MG, 3X/DAY
  6. TEGRETOL [Concomitant]
     Dosage: 400 MG, 4X/DAY

REACTIONS (4)
  - CONTUSION [None]
  - DIZZINESS [None]
  - FALL [None]
  - LOSS OF CONSCIOUSNESS [None]
